FAERS Safety Report 21951590 (Version 1)
Quarter: 2023Q1

REPORT INFORMATION
  Report Type: Spontaneous
  Country: US (occurrence: US)
  Receive Date: 20230203
  Receipt Date: 20230203
  Transmission Date: 20230418
  Serious: No
  Sender: FDA-Public Use
  Company Number: US-NAPO PHARMACEUTICALS-2022US005204

PATIENT
  Age: 79 Year
  Sex: Female

DRUGS (4)
  1. MYTESI [Suspect]
     Active Substance: CROFELEMER
     Indication: Crohn^s disease
     Dosage: 125 MG, BID
     Route: 048
  2. MYTESI [Suspect]
     Active Substance: CROFELEMER
     Dosage: 125 MG,ONCE DAILY
     Route: 048
  3. LOPERAMIDE [Concomitant]
     Active Substance: LOPERAMIDE
     Indication: Product used for unknown indication
     Dosage: 2 MG, EVERY 2 TO 3 HOURS AS NEEDED
     Route: 065
  4. VIBERZI [Concomitant]
     Active Substance: ELUXADOLINE
     Indication: Product used for unknown indication
     Dosage: 75 MG
     Route: 065

REACTIONS (4)
  - Vulvovaginal pruritus [Unknown]
  - Pruritus [Unknown]
  - Urinary tract infection [Unknown]
  - Off label use [Unknown]
